FAERS Safety Report 7759313-8 (Version None)
Quarter: 2011Q3

REPORT INFORMATION
  Report Type: 
  Country: None (occurrence: None)
  Receive Date: 20110919
  Receipt Date: 20110830
  Transmission Date: 20111222
  Serious: No
  Sender: FDA-Public Use
  Company Number: US-JNJFOC-20110900510

PATIENT
  Sex: Male
  Weight: 63.5 kg

DRUGS (3)
  1. ZYTIGA [Suspect]
     Indication: PROSTATE CANCER
     Dosage: DOSE STRENGTH: 250 MG
     Route: 048
     Dates: start: 20110603
  2. UNSPECIFIED ACE INHIBITOR [Concomitant]
     Route: 048
     Dates: start: 20010101
  3. BETA-BLOCKER, NOS [Concomitant]
     Route: 048
     Dates: start: 20010101

REACTIONS (1)
  - PROSTATIC SPECIFIC ANTIGEN DECREASED [None]
